FAERS Safety Report 5092750-1 (Version None)
Quarter: 2006Q3

REPORT INFORMATION
  Report Type: 
  Country: None (occurrence: None)
  Receive Date: 20060828
  Receipt Date: 20060814
  Transmission Date: 20061208
  Serious: Yes (Hospitalization, Disabling)
  Sender: FDA-Public Use
  Company Number: 2005026451

PATIENT
  Age: 12 Year
  Sex: Female
  Weight: 33.5662 kg

DRUGS (4)
  1. GENOTROPIN [Suspect]
     Indication: HYPOPITUITARISM
     Dosage: 1  MG (1 MG, 1 IN 1 D), SUBCUTANEOUS
     Route: 058
     Dates: start: 20040921, end: 20050201
  2. CALCIUM PLUS (CALCIUM PLUS) [Concomitant]
  3. DESFERAL (DEFEROXAMINE MESILATE) [Concomitant]
  4. HYDROCORTISONE [Concomitant]

REACTIONS (3)
  - ARTHRALGIA [None]
  - GAIT DISTURBANCE [None]
  - HIP SURGERY [None]
